FAERS Safety Report 22980520 (Version 5)
Quarter: 2024Q2

REPORT INFORMATION
  Report Type: Spontaneous
  Country: CA (occurrence: CA)
  Receive Date: 20230925
  Receipt Date: 20240513
  Transmission Date: 20240716
  Serious: Yes (Other)
  Sender: FDA-Public Use
  Company Number: CA-PFIZER INC-202300047581

PATIENT
  Age: 54 Year
  Sex: Female
  Weight: 55 kg

DRUGS (12)
  1. RUXIENCE [Suspect]
     Active Substance: RITUXIMAB-PVVR
     Indication: Interstitial lung disease
     Dosage: 1 G, WEEK 0 AND WEEK 2 (1000 MG DAY 1 AND DAY 15)
     Route: 042
     Dates: start: 20230217
  2. RUXIENCE [Suspect]
     Active Substance: RITUXIMAB-PVVR
     Dosage: 1000 MG, WEEK 2
     Route: 042
     Dates: start: 20230303
  3. RUXIENCE [Suspect]
     Active Substance: RITUXIMAB-PVVR
     Dosage: 1 G, WEEK 0 AND WEEK 2, (1000MG , SUBSEQUENT DAY 1)
     Route: 042
     Dates: start: 20231003
  4. RUXIENCE [Suspect]
     Active Substance: RITUXIMAB-PVVR
     Dosage: 1 G, WEEK 0 AND WEEK 2, (1000MG , SUBSEQUENT DAY 1)
     Route: 042
     Dates: start: 20231003
  5. RUXIENCE [Suspect]
     Active Substance: RITUXIMAB-PVVR
     Dosage: 1000 MG WEEK 0 AND WEEK 2 (1000MG AFTER 9 WEEKS)
     Route: 042
     Dates: start: 20231205
  6. RUXIENCE [Suspect]
     Active Substance: RITUXIMAB-PVVR
     Dosage: 1000 MG, EVERY 6 MONTH (5 MONTHS AND 3 DAYS)
     Route: 042
     Dates: start: 20240508
  7. RUXIENCE [Suspect]
     Active Substance: RITUXIMAB-PVVR
     Dosage: 1000 MG, EVERY 6 MONTH (5 MONTHS AND 3 DAYS)
     Route: 042
     Dates: start: 20240508
  8. DIPHENHYDRAMINE [Concomitant]
     Active Substance: DIPHENHYDRAMINE
     Indication: Premedication
     Dosage: UNK
     Dates: start: 20230303, end: 20230303
  9. DIPHENHYDRAMINE [Concomitant]
     Active Substance: DIPHENHYDRAMINE
     Dosage: UNK
     Dates: start: 20231003, end: 20231003
  10. METHYLPREDNISOLONE [Concomitant]
     Active Substance: METHYLPREDNISOLONE
     Indication: Premedication
     Dosage: UNK
     Dates: start: 20230303, end: 20230303
  11. METHYLPREDNISOLONE [Concomitant]
     Active Substance: METHYLPREDNISOLONE
     Dosage: UNK
     Dates: start: 20231003, end: 20231003
  12. MYFORTIC [Concomitant]
     Active Substance: MYCOPHENOLATE SODIUM
     Dosage: 1 DF

REACTIONS (6)
  - Diabetes mellitus [Unknown]
  - Nasopharyngitis [Recovering/Resolving]
  - Productive cough [Not Recovered/Not Resolved]
  - COVID-19 [Recovered/Resolved]
  - Off label use [Unknown]
  - Inappropriate schedule of product administration [Unknown]

NARRATIVE: CASE EVENT DATE: 20230101
